FAERS Safety Report 7397745-0 (Version None)
Quarter: 2011Q2

REPORT INFORMATION
  Report Type: 
  Country: None (occurrence: None)
  Receive Date: 20110406
  Receipt Date: 20110328
  Transmission Date: 20111010
  Serious: Yes (Other)
  Sender: FDA-Public Use
  Company Number: US-BAYER-2011-010789

PATIENT
  Sex: Female

DRUGS (1)
  1. MIRENA [Suspect]
     Indication: CONTRACEPTION
     Dosage: 20 ?G, CONT
     Route: 015
     Dates: start: 20081218

REACTIONS (6)
  - DEVICE DISLOCATION [None]
  - CHLAMYDIAL INFECTION [None]
  - DEVICE EXPULSION [None]
  - GONORRHOEA [None]
  - PELVIC INFLAMMATORY DISEASE [None]
  - ABDOMINAL PAIN [None]
